FAERS Safety Report 13527554 (Version 2)
Quarter: 2017Q3

REPORT INFORMATION
  Report Type: Report from Study
  Country: RU (occurrence: RU)
  Receive Date: 20170509
  Receipt Date: 20170705
  Transmission Date: 20171127
  Serious: Yes (Hospitalization, Other)
  Sender: FDA-Public Use
  Company Number: RU-GLAXOSMITHKLINE-RU2017056564

PATIENT
  Age: 21 Year
  Sex: Male
  Weight: 77 kg

DRUGS (1)
  1. BELIMUMAB [Suspect]
     Active Substance: BELIMUMAB
     Indication: SYSTEMIC LUPUS ERYTHEMATOSUS
     Dosage: UNK UNK, CYC
     Route: 042
     Dates: start: 20160908

REACTIONS (2)
  - Craniocerebral injury [Unknown]
  - Skull fractured base [Not Recovered/Not Resolved]

NARRATIVE: CASE EVENT DATE: 20170417
